FAERS Safety Report 17274199 (Version 1)
Quarter: 2020Q1

REPORT INFORMATION
  Report Type: Report from Study
  Country: US (occurrence: US)
  Receive Date: 20200115
  Receipt Date: 20200115
  Transmission Date: 20200409
  Serious: Yes (Hospitalization, Other)
  Sender: FDA-Public Use
  Company Number: US-BAYER-2020-004995

PATIENT
  Age: 68 Year
  Sex: Male

DRUGS (2)
  1. CLOPIDOGREL [Interacting]
     Active Substance: CLOPIDOGREL BISULFATE
  2. ASPIRIN. [Suspect]
     Active Substance: ASPIRIN

REACTIONS (6)
  - Subdural haematoma [None]
  - Monoparesis [None]
  - Hemiplegia [None]
  - Labelled drug-drug interaction medication error [None]
  - Hemiparesis [None]
  - Monoplegia [None]
